FAERS Safety Report 18148910 (Version 1)
Quarter: 2020Q3

REPORT INFORMATION
  Report Type: Spontaneous
  Country: US (occurrence: US)
  Receive Date: 20200813
  Receipt Date: 20200813
  Transmission Date: 20201103
  Serious: Yes (Hospitalization)
  Sender: FDA-Public Use
  Company Number: None

PATIENT
  Sex: Female

DRUGS (2)
  1. PROCRIT [Suspect]
     Active Substance: ERYTHROPOIETIN
     Indication: BREAST CANCER FEMALE
     Dosage: ?          OTHER STRENGTH:20000 UNIT/ML ;OTHER DOSE:20000 UNIT ;?
     Route: 058
     Dates: start: 201911
  2. XGEVA [Suspect]
     Active Substance: DENOSUMAB
     Indication: BREAST CANCER FEMALE
     Route: 058
     Dates: start: 201911

REACTIONS (1)
  - Viral infection [None]
